FAERS Safety Report 8280365-3 (Version None)
Quarter: 2012Q2

REPORT INFORMATION
  Report Type: 
  Country: None (occurrence: None)
  Receive Date: 20120412
  Receipt Date: 20110404
  Transmission Date: 20120825
  Serious: Yes (Hospitalization, Other)
  Sender: FDA-Public Use
  Company Number: US-ASTRAZENECA-2010SE44908

PATIENT
  Age: 68 Year
  Sex: Female

DRUGS (1)
  1. NEXIUM [Suspect]
     Dosage: DAILY
     Route: 048

REACTIONS (11)
  - FALL [None]
  - NASOPHARYNGITIS [None]
  - CHEST DISCOMFORT [None]
  - HIP FRACTURE [None]
  - INFLUENZA [None]
  - DIZZINESS [None]
  - DRUG INEFFECTIVE [None]
  - FACIAL BONES FRACTURE [None]
  - FOOT FRACTURE [None]
  - LABYRINTHITIS [None]
  - MALAISE [None]
